FAERS Safety Report 11459951 (Version 1)
Quarter: 2015Q3

REPORT INFORMATION
  Report Type: Spontaneous
  Country: JP (occurrence: JP)
  Receive Date: 20150904
  Receipt Date: 20150904
  Transmission Date: 20151125
  Serious: Yes (Death, Hospitalization, Other)
  Sender: FDA-Public Use
  Company Number: JP-AMGEN-JPNSP2015065625

PATIENT
  Age: 73 Year
  Sex: Male
  Weight: 45.9 kg

DRUGS (8)
  1. ELPLAT [Suspect]
     Active Substance: OXALIPLATIN
     Dosage: 100 MG, Q2WEEKS
     Route: 041
     Dates: start: 20150311, end: 20150604
  2. 5-FU                               /00098801/ [Suspect]
     Active Substance: FLUOROURACIL
     Dosage: 460 MG, Q2WK
     Route: 040
     Dates: start: 20150311, end: 20150604
  3. 5-FU                               /00098801/ [Suspect]
     Active Substance: FLUOROURACIL
     Dosage: 3000 MG, Q2WEEKS
     Route: 041
     Dates: start: 20150311, end: 20150604
  4. ELPLAT [Suspect]
     Active Substance: OXALIPLATIN
     Indication: COLON CANCER
     Dosage: 135 MG, Q2WEEKS
     Route: 041
     Dates: start: 20150225, end: 20150225
  5. 5-FU                               /00098801/ [Suspect]
     Active Substance: FLUOROURACIL
     Dosage: 3800 MG, Q2WEEKS
     Route: 041
     Dates: start: 20150225, end: 20150225
  6. VECTIBIX [Suspect]
     Active Substance: PANITUMUMAB
     Indication: COLON CANCER
     Dosage: 6 MG/KG, Q2WEEKS
     Route: 041
     Dates: start: 20150225, end: 20150604
  7. 5-FU                               /00098801/ [Suspect]
     Active Substance: FLUOROURACIL
     Indication: COLON CANCER
     Dosage: 625 MG, Q2WK
     Route: 040
     Dates: start: 20150225, end: 20150225
  8. CALCIUM LEVOFOLINATE [Concomitant]
     Active Substance: LEVOLEUCOVORIN CALCIUM
     Indication: COLON CANCER
     Dosage: 315 MG, Q2WEEKS
     Route: 041
     Dates: start: 20150225, end: 20150604

REACTIONS (4)
  - Decreased appetite [Unknown]
  - Neuropathy peripheral [Recovered/Resolved with Sequelae]
  - Skin disorder [Recovered/Resolved with Sequelae]
  - Colon cancer [Fatal]

NARRATIVE: CASE EVENT DATE: 20150228
